FAERS Safety Report 10071413 (Version 1)
Quarter: 2014Q2

REPORT INFORMATION
  Report Type: Spontaneous
  Country: PT (occurrence: PT)
  Receive Date: 20140410
  Receipt Date: 20140410
  Transmission Date: 20141212
  Serious: Yes (Death, Hospitalization)
  Sender: FDA-Public Use
  Company Number: PHHY2014PT040341

PATIENT
  Age: 56 Year
  Sex: Male

DRUGS (3)
  1. VALPROIC ACID [Suspect]
     Indication: STATUS EPILEPTICUS
  2. DIAZEPAM [Suspect]
     Indication: STATUS EPILEPTICUS
  3. PHENYTOIN SODIUM [Suspect]
     Indication: STATUS EPILEPTICUS

REACTIONS (3)
  - Cardiopulmonary failure [Fatal]
  - Status epilepticus [Unknown]
  - Drug ineffective [Unknown]
